FAERS Safety Report 19799660 (Version 1)
Quarter: 2021Q3

REPORT INFORMATION
  Report Type: Spontaneous
  Country: US (occurrence: US)
  Receive Date: 20210907
  Receipt Date: 20210907
  Transmission Date: 20211014
  Serious: Yes (Other)
  Sender: FDA-Public Use
  Company Number: US-MYLANLABS-2021M1059759

PATIENT
  Age: 44 Year
  Sex: Male

DRUGS (10)
  1. ETOPOSIDE. [Suspect]
     Active Substance: ETOPOSIDE
     Indication: ANGIOCENTRIC LYMPHOMA
     Dosage: 100 MILLIGRAM/SQ. METER MODIFIED SMILE REGIMEN; ON DAYS 2 TO 4 OF A 28?DAY CYCLE
     Route: 065
     Dates: start: 20200120
  2. IFOSFAMIDE. [Suspect]
     Active Substance: IFOSFAMIDE
     Indication: ANGIOCENTRIC LYMPHOMA
     Dosage: 1500 MILLIGRAM/SQ. METER MODIFIED SMILE REGIMEN; ON DAYS 2 TO 4 OF A 28?DAY CYCLE
     Route: 065
     Dates: start: 20200120
  3. METHOTREXATE. [Suspect]
     Active Substance: METHOTREXATE
     Dosage: REDUCED DOSE
     Route: 065
     Dates: start: 20200327
  4. METHOTREXATE. [Suspect]
     Active Substance: METHOTREXATE
     Indication: ANGIOCENTRIC LYMPHOMA
     Dates: start: 20200211
  5. PEGASPARGASE [Suspect]
     Active Substance: PEGASPARGASE
     Indication: ANGIOCENTRIC LYMPHOMA
     Dosage: MODIFIED SMILE REGIMEN; 2000 U/M2 ON DAY 8 OF A 28?DAY CYCLE
     Route: 065
     Dates: start: 20200126
  6. DEXAMETHASONE. [Suspect]
     Active Substance: DEXAMETHASONE
     Indication: ANGIOCENTRIC LYMPHOMA
     Dosage: 40 MILLIGRAM, QD MODIFIED SMILE REGIMEN; ON DAYS 2 TO 4 OF A 28?DAY CYCLE
     Route: 065
     Dates: start: 20200120
  7. METHOTREXATE. [Suspect]
     Active Substance: METHOTREXATE
     Indication: ANGIOCENTRIC LYMPHOMA
     Dosage: MODIFIED SMILE REGIMEN; 2 G/M2 ON DAY 1 OF A 28?DAY CYCLE
     Route: 065
     Dates: start: 20200119
  8. METHOTREXATE. [Suspect]
     Active Substance: METHOTREXATE
     Dosage: UNK
     Dates: start: 20200219
  9. METHOTREXATE. [Suspect]
     Active Substance: METHOTREXATE
     Dosage: UNK
     Dates: start: 20200214
  10. METHOTREXATE. [Suspect]
     Active Substance: METHOTREXATE
     Dosage: UNK
     Dates: start: 20200221

REACTIONS (3)
  - Fatigue [Unknown]
  - Cytopenia [Unknown]
  - Neutropenia [Unknown]

NARRATIVE: CASE EVENT DATE: 2020
